FAERS Safety Report 6874795-1 (Version None)
Quarter: 2010Q3

REPORT INFORMATION
  Report Type: 
  Country: None (occurrence: None)
  Receive Date: 20100712
  Receipt Date: 20100701
  Transmission Date: 20110219
  Serious: Yes (Other)
  Sender: FDA-Public Use
  Company Number: 2010SP033395

PATIENT
  Sex: Male
  Weight: 75 kg

DRUGS (3)
  1. REMERON [Suspect]
     Indication: INSOMNIA
     Dosage: 30 MG; QD; PO
     Route: 048
  2. TYLEX /00020001/ [Concomitant]
  3. COCAINE [Concomitant]

REACTIONS (3)
  - ACCIDENT [None]
  - DRUG INEFFECTIVE [None]
  - OFF LABEL USE [None]
